FAERS Safety Report 19874757 (Version 1)
Quarter: 2021Q3

REPORT INFORMATION
  Report Type: Spontaneous
  Country: US (occurrence: US)
  Receive Date: 20210923
  Receipt Date: 20210923
  Transmission Date: 20211014
  Serious: No
  Sender: FDA-Public Use
  Company Number: US-SA-2021SA311844

PATIENT
  Age: 42 Year
  Sex: Female

DRUGS (1)
  1. LANTUS SOLOSTAR [Suspect]
     Active Substance: INSULIN GLARGINE
     Indication: TYPE 2 DIABETES MELLITUS
     Dosage: 80 IU
     Route: 065

REACTIONS (3)
  - Arthritis [Not Recovered/Not Resolved]
  - Device issue [Not Recovered/Not Resolved]
  - Injection site extravasation [Not Recovered/Not Resolved]

NARRATIVE: CASE EVENT DATE: 20210917
